FAERS Safety Report 6114822-2 (Version None)
Quarter: 2009Q1

REPORT INFORMATION
  Report Type: 
  Country: None (occurrence: None)
  Receive Date: 20090313
  Receipt Date: 20090304
  Transmission Date: 20090719
  Serious: Yes (Life-Threatening)
  Sender: FDA-Public Use
  Company Number: JP-SANOFI-SYNTHELABO-A01200901203

PATIENT
  Sex: Female
  Weight: 45 kg

DRUGS (9)
  1. EVISTA [Concomitant]
     Indication: OSTEOPOROSIS
     Route: 048
     Dates: start: 20081128
  2. DESYREL [Concomitant]
     Indication: DEPRESSION
     Route: 048
     Dates: start: 20081114
  3. DIPYRIDAMOLE [Concomitant]
     Indication: ANGINA PECTORIS
     Route: 048
     Dates: start: 20081114
  4. LOPRESOR [Concomitant]
     Indication: ANGINA PECTORIS
     Route: 048
     Dates: start: 20081114
  5. POLYFUL [Concomitant]
     Indication: IRRITABLE BOWEL SYNDROME
     Route: 048
     Dates: start: 20081110
  6. GASTER [Concomitant]
     Indication: GASTRIC ULCER
     Route: 048
     Dates: start: 20081107
  7. PLAVIX [Suspect]
     Indication: ISCHAEMIC CEREBRAL INFARCTION
     Route: 048
     Dates: start: 20081120, end: 20090116
  8. SIGMART [Concomitant]
     Indication: ANGINA PECTORIS
     Route: 048
     Dates: start: 20081114
  9. TRANCOLON [Concomitant]
     Indication: IRRITABLE BOWEL SYNDROME
     Route: 048
     Dates: start: 20081128

REACTIONS (2)
  - CONDITION AGGRAVATED [None]
  - HYPOKALAEMIA [None]
